FAERS Safety Report 16571216 (Version 3)
Quarter: 2019Q4

REPORT INFORMATION
  Report Type: Spontaneous
  Country: US (occurrence: US)
  Receive Date: 20190715
  Receipt Date: 20191007
  Transmission Date: 20200122
  Serious: Yes (Death, Hospitalization, Other)
  Sender: FDA-Public Use
  Company Number: US-PFIZER INC-2019299196

PATIENT
  Age: 79 Year
  Sex: Female
  Weight: 66.22 kg

DRUGS (2)
  1. VFEND [Suspect]
     Active Substance: VORICONAZOLE
     Indication: ACUTE MYELOID LEUKAEMIA
     Dosage: 200 MG, 2X/DAY
     Route: 048
     Dates: start: 201903
  2. VFEND [Suspect]
     Active Substance: VORICONAZOLE
     Indication: INFECTION

REACTIONS (9)
  - Back pain [Unknown]
  - Death [Fatal]
  - Osteomyelitis [Unknown]
  - Subcutaneous abscess [Unknown]
  - Device related sepsis [Not Recovered/Not Resolved]
  - Inflammation [Unknown]
  - Deep vein thrombosis [Unknown]
  - Atrial fibrillation [Unknown]
  - Streptococcal sepsis [Not Recovered/Not Resolved]
